FAERS Safety Report 7202794-9 (Version None)
Quarter: 2010Q4

REPORT INFORMATION
  Report Type: 
  Country: None (occurrence: None)
  Receive Date: 20101229
  Receipt Date: 20100922
  Transmission Date: 20110411
  Serious: No
  Sender: FDA-Public Use
  Company Number: US-BAUSCH-2010BL005382

PATIENT
  Age: 45 Year
  Sex: Female

DRUGS (2)
  1. BESIVANCE [Suspect]
     Indication: ULCERATIVE KERATITIS
     Route: 047
     Dates: start: 20100101
  2. BESIVANCE [Suspect]
     Indication: OFF LABEL USE
     Route: 047
     Dates: start: 20100101

REACTIONS (2)
  - DRUG TOXICITY [None]
  - INAPPROPRIATE SCHEDULE OF DRUG ADMINISTRATION [None]
